FAERS Safety Report 14670023 (Version 1)
Quarter: 2018Q1

REPORT INFORMATION
  Report Type: Spontaneous
  Country: US (occurrence: US)
  Receive Date: 20180322
  Receipt Date: 20180322
  Transmission Date: 20180509
  Serious: No
  Sender: FDA-Public Use
  Company Number: US-PFIZER INC-2018116622

PATIENT
  Age: 65 Year
  Sex: Female
  Weight: 68.93 kg

DRUGS (2)
  1. ZOLPIDEM TARTRATE. [Interacting]
     Active Substance: ZOLPIDEM TARTRATE
     Dosage: 10 MG, 1X/DAY (ONE TABLET BY MOUTH AT BEDTIME)
     Route: 048
  2. GABAPENTIN. [Suspect]
     Active Substance: GABAPENTIN
     Indication: NEUROPATHY PERIPHERAL
     Dosage: 300 MG, 2X/DAY
     Route: 048
     Dates: start: 201709

REACTIONS (2)
  - Somnolence [Unknown]
  - Drug interaction [Unknown]
